FAERS Safety Report 8400094-2 (Version None)
Quarter: 2012Q2

REPORT INFORMATION
  Report Type: 
  Country: None (occurrence: None)
  Receive Date: 20120531
  Receipt Date: 20120525
  Transmission Date: 20120825
  Serious: Yes (Hospitalization)
  Sender: FDA-Public Use
  Company Number: FR-PFIZER INC-2009277963

PATIENT
  Age: 71 Year
  Sex: Female

DRUGS (19)
  1. ISOSORBIDE DINITRATE [Suspect]
     Indication: PREMEDICATION
     Dosage: UNK
     Dates: start: 20090821, end: 20090821
  2. TOCOPHERYL ACETATE [Suspect]
     Dosage: UNK
     Dates: start: 20090821, end: 20090821
  3. ISOPTIN [Suspect]
     Indication: PREMEDICATION
     Dosage: UNK
     Dates: start: 20090821, end: 20090821
  4. REPAGLINIDE [Suspect]
     Dosage: 1.5 MG, 1X/DAY
     Route: 048
     Dates: start: 20090822, end: 20090828
  5. ASPIRIN [Suspect]
     Dosage: 160 MG, 1X/DAY
     Route: 048
     Dates: start: 20090822
  6. DAFLON [Concomitant]
  7. AMLODIPINE BESYLATE [Suspect]
     Dosage: 10 MG, 1X/DAY
     Route: 048
     Dates: start: 20090822
  8. PLAVIX [Suspect]
     Dosage: 75 MG, 1X/DAY
     Route: 048
     Dates: start: 20090822
  9. JANUVIA [Concomitant]
     Indication: TYPE 2 DIABETES MELLITUS
     Dosage: UNK
     Dates: start: 20090101
  10. EBASTINE [Concomitant]
  11. METFORMIN HCL [Suspect]
     Indication: TYPE 2 DIABETES MELLITUS
     Dosage: 500 MG, 3X/DAY
     Route: 048
     Dates: start: 20090822, end: 20090828
  12. BETADINE [Suspect]
     Indication: INFECTION PROPHYLAXIS
     Dosage: UNK
     Route: 061
     Dates: start: 20090821, end: 20090821
  13. VISIPAQUE [Suspect]
     Dosage: UNK
     Route: 042
     Dates: start: 20090821, end: 20090821
  14. HAVLANE [Concomitant]
  15. POLYETHYLENE GLYCOL [Concomitant]
  16. LOVENOX [Suspect]
     Indication: PREMEDICATION
     Dosage: UNK
     Route: 058
     Dates: start: 20090821, end: 20090821
  17. SOLU-MEDROL [Suspect]
     Indication: PREMEDICATION
     Dosage: UNK
     Dates: start: 20090821, end: 20090821
  18. DESLORATADINE [Concomitant]
  19. NORDAZ [Concomitant]

REACTIONS (3)
  - RASH ERYTHEMATOUS [None]
  - RASH MACULO-PAPULAR [None]
  - PRURITUS [None]
